FAERS Safety Report 26101162 (Version 1)
Quarter: 2025Q4

REPORT INFORMATION
  Report Type: Spontaneous
  Country: EU (occurrence: EU)
  Receive Date: 20251128
  Receipt Date: 20251128
  Transmission Date: 20260118
  Serious: Yes (Hospitalization)
  Sender: TEVA
  Company Number: None

PATIENT
  Age: 19 Year
  Sex: Male
  Weight: 38 kg

DRUGS (1)
  1. VERAPAMIL [Suspect]
     Active Substance: VERAPAMIL HYDROCHLORIDE
     Indication: Poisoning deliberate
     Dosage: TIME INTERVAL: TOTAL: VERAPAMIL (HYDROCHLORIDE)
     Route: 048
     Dates: start: 20251017, end: 20251017

REACTIONS (2)
  - Haemodynamic instability [Recovered/Resolved]
  - Poisoning deliberate [Recovered/Resolved]

NARRATIVE: CASE EVENT DATE: 20251017
